FAERS Safety Report 6118429-2 (Version None)
Quarter: 2009Q1

REPORT INFORMATION
  Report Type: 
  Country: None (occurrence: None)
  Receive Date: 20090314
  Receipt Date: 20090217
  Transmission Date: 20090719
  Serious: No
  Sender: FDA-Public Use
  Company Number: US-ABBOTT-09P-163-0558076-00

PATIENT
  Sex: Female
  Weight: 70.37 kg

DRUGS (9)
  1. HUMIRA [Suspect]
     Indication: CROHN'S DISEASE
     Route: 058
     Dates: start: 20071101
  2. LANOXIN [Concomitant]
     Indication: ARRHYTHMIA
     Route: 048
  3. LASIX [Concomitant]
     Indication: OEDEMA
     Route: 048
  4. VIOKASE [Concomitant]
     Indication: PANCREATITIS
     Route: 048
  5. COUMADIN [Concomitant]
     Indication: PHLEBITIS
     Route: 048
  6. HUMULIN 70/30 [Concomitant]
     Indication: TYPE 2 DIABETES MELLITUS
     Route: 058
  7. PREVACID [Concomitant]
     Indication: PANCREATITIS
     Route: 048
  8. CALCIUM +VIT D [Concomitant]
     Indication: MEDICAL DIET
     Dosage: UNKNOWN
     Route: 048
  9. MULTI-VITAMIN [Concomitant]
     Indication: MEDICAL DIET
     Dosage: UNKNOWN
     Route: 048

REACTIONS (2)
  - LARGE INTESTINAL ULCER [None]
  - PNEUMONIA [None]
